FAERS Safety Report 6720348-5 (Version None)
Quarter: 2010Q2

REPORT INFORMATION
  Report Type: 
  Country: None (occurrence: None)
  Receive Date: 20100511
  Receipt Date: 20100506
  Transmission Date: 20101027
  Serious: Yes (Other)
  Sender: FDA-Public Use
  Company Number: US-PFIZER INC-2010057131

PATIENT
  Sex: Male

DRUGS (2)
  1. DETROL LA [Suspect]
     Dosage: UNK
  2. ARICEPT [Interacting]
     Dosage: UNK

REACTIONS (2)
  - DRUG INTERACTION [None]
  - MEMORY IMPAIRMENT [None]
